FAERS Safety Report 17085091 (Version 9)
Quarter: 2022Q1

REPORT INFORMATION
  Report Type: Spontaneous
  Country: US (occurrence: US)
  Receive Date: 20191127
  Receipt Date: 20220331
  Transmission Date: 20220423
  Serious: Yes (Hospitalization)
  Sender: FDA-Public Use
  Company Number: US-NOVARTISPH-NVSC2019US050016

PATIENT
  Age: 5 Year
  Sex: Male

DRUGS (3)
  1. KYMRIAH [Suspect]
     Active Substance: TISAGENLECLEUCEL
     Indication: Acute lymphocytic leukaemia
     Dosage: 2.1 UG/KG, ONCE/SINGLE
     Route: 042
     Dates: start: 20190604
  2. KYMRIAH [Suspect]
     Active Substance: TISAGENLECLEUCEL
     Dosage: 2 X 10E6 (2.5 X 10E8) 23 ML EACH BAG X 2
     Route: 042
     Dates: start: 20190910
  3. SULFAMETHOXAZOLE\TRIMETHOPRIM [Concomitant]
     Active Substance: SULFAMETHOXAZOLE\TRIMETHOPRIM
     Indication: Prophylaxis
     Dosage: 5 ML/ 40 MG (40/200 MG/ 5ML SUSPENSION) (40 MG BID ON SATURDAY AND SUNDAY)
     Route: 048
     Dates: start: 20190904

REACTIONS (10)
  - Hypophagia [Recovering/Resolving]
  - Coronavirus infection [Unknown]
  - Respiratory syncytial virus infection [Unknown]
  - Vomiting [Recovered/Resolved]
  - Treatment failure [Unknown]
  - Retching [Unknown]
  - Fatigue [Unknown]
  - Nasal congestion [Unknown]
  - Cough [Unknown]
  - Off label use [Unknown]

NARRATIVE: CASE EVENT DATE: 20190726
